FAERS Safety Report 4531441-X (Version None)
Quarter: 2004Q4

REPORT INFORMATION
  Report Type: 
  Country: None (occurrence: None)
  Receive Date: 20041217
  Receipt Date: 20040902
  Transmission Date: 20050328
  Serious: Yes (Hospitalization, Other)
  Sender: FDA-Public Use
  Company Number: 2004S1002743

PATIENT
  Age: 52 Year
  Sex: Male
  Weight: 70.3075 kg

DRUGS (5)
  1. LORAZEPAM [Suspect]
     Indication: DETOXIFICATION
     Dosage: 2 MG Q 2 HOURS PRN, ORAL
     Route: 048
     Dates: start: 20040822, end: 20040824
  2. METOPROLOL TARTRATE [Concomitant]
  3. ASPIRIN [Concomitant]
  4. MULTI-VITAMIN [Concomitant]
  5. THIAMINE [Concomitant]

REACTIONS (3)
  - CONFUSIONAL STATE [None]
  - DELIRIUM TREMENS [None]
  - HALLUCINATION [None]
